FAERS Safety Report 7628524-4 (Version None)
Quarter: 2011Q3

REPORT INFORMATION
  Report Type: 
  Country: None (occurrence: None)
  Receive Date: 20110722
  Receipt Date: 20110717
  Transmission Date: 20111222
  Serious: Yes (Death, Other)
  Sender: FDA-Public Use
  Company Number: DE-GENZYME-FLUD-1001209

PATIENT
  Age: 17 Year
  Sex: Female

DRUGS (10)
  1. INDIUM (111 IN) [Suspect]
     Indication: STEM CELL TRANSPLANT
     Dosage: 71 +/- 28 MBQ ONCE
     Route: 042
  2. YTTRIUM (90 Y) [Suspect]
     Indication: ACUTE MYELOID LEUKAEMIA
  3. ANTI-THYMOCYTE GLOBULIN NOS [Suspect]
     Indication: STEM CELL TRANSPLANT
     Dosage: UNK
     Route: 065
  4. INDIUM (111 IN) [Suspect]
     Indication: ACUTE MYELOID LEUKAEMIA
  5. YTTRIUM (90 Y) [Suspect]
     Indication: STEM CELL TRANSPLANT
     Dosage: UNK
     Route: 042
  6. CYCLOSPORINE [Concomitant]
     Indication: PROPHYLAXIS AGAINST GRAFT VERSUS HOST DISEASE
     Dosage: UNK
     Route: 065
  7. ANTI-THYMOCYTE GLOBULIN NOS [Suspect]
     Indication: ACUTE MYELOID LEUKAEMIA
  8. FLUDARA [Suspect]
     Indication: ACUTE MYELOID LEUKAEMIA
  9. MYLOTARG [Concomitant]
     Indication: PRODUCT USED FOR UNKNOWN INDICATION
     Dosage: UNK, TWICE
     Route: 065
  10. FLUDARA [Suspect]
     Indication: STEM CELL TRANSPLANT
     Dosage: 160 MG/M2, UNK
     Route: 065

REACTIONS (4)
  - INFECTION [None]
  - POLYSEROSITIS [None]
  - APALLIC SYNDROME [None]
  - PERICARDIAL EFFUSION [None]
